FAERS Safety Report 18493512 (Version 1)
Quarter: 2020Q4

REPORT INFORMATION
  Report Type: Spontaneous
  Country: US (occurrence: US)
  Receive Date: 20201112
  Receipt Date: 20201112
  Transmission Date: 20210114
  Serious: No
  Sender: FDA-Public Use
  Company Number: US-TAKEDA-2020TUS044887

PATIENT
  Age: 38 Year
  Sex: Female
  Weight: 70.3 kg

DRUGS (11)
  1. CUVITRU [Suspect]
     Active Substance: HUMAN IMMUNOGLOBULIN G
     Indication: PRODUCT USED FOR UNKNOWN INDICATION
     Dosage: 8 GRAM, 1/WEEK
     Route: 058
     Dates: start: 20191223
  2. IBUPROFEN. [Concomitant]
     Active Substance: IBUPROFEN
  3. SUMATRIPTAN. [Concomitant]
     Active Substance: SUMATRIPTAN
  4. TOPAMAX [Concomitant]
     Active Substance: TOPIRAMATE
  5. HYDROXYCUT [Concomitant]
     Active Substance: DIETARY SUPPLEMENT
  6. OXYBUTYNIN. [Concomitant]
     Active Substance: OXYBUTYNIN CHLORIDE
  7. LMX4 [Concomitant]
     Active Substance: LIDOCAINE
  8. ACETAMINOPHEN. [Concomitant]
     Active Substance: ACETAMINOPHEN
  9. DIPHENHYDRAMINE. [Concomitant]
     Active Substance: DIPHENHYDRAMINE
  10. EPINEPHRINE. [Concomitant]
     Active Substance: EPINEPHRINE
  11. ZOLMITRIPTAN. [Concomitant]
     Active Substance: ZOLMITRIPTAN

REACTIONS (4)
  - Liquid product physical issue [Unknown]
  - Insurance issue [Unknown]
  - Sinusitis [Unknown]
  - Product dose omission issue [Unknown]

NARRATIVE: CASE EVENT DATE: 202010
